FAERS Safety Report 19588108 (Version 1)
Quarter: 2021Q3

REPORT INFORMATION
  Report Type: Spontaneous
  Country: US (occurrence: US)
  Receive Date: 20210721
  Receipt Date: 20210721
  Transmission Date: 20211014
  Serious: Yes (Disabling)
  Sender: FDA-Public Use
  Company Number: None

PATIENT
  Age: 34 Year
  Sex: Female
  Weight: 58.5 kg

DRUGS (2)
  1. TRIAMCINOLONE [Suspect]
     Active Substance: TRIAMCINOLONE
     Indication: ECZEMA
     Dates: start: 20110101, end: 20210313
  2. DUPIXENT [Concomitant]
     Active Substance: DUPILUMAB

REACTIONS (8)
  - Skin weeping [None]
  - Pruritus [None]
  - Pruritus genital [None]
  - Steroid withdrawal syndrome [None]
  - Lymphadenopathy [None]
  - Loss of therapeutic response [None]
  - Eczema [None]
  - Acarodermatitis [None]

NARRATIVE: CASE EVENT DATE: 20190720
